FAERS Safety Report 7315335-2 (Version None)
Quarter: 2011Q1

REPORT INFORMATION
  Report Type: 
  Country: None (occurrence: None)
  Receive Date: 20110225
  Receipt Date: 20110221
  Transmission Date: 20110831
  Serious: Yes (Death)
  Sender: FDA-Public Use
  Company Number: US-B.I. PHARMACEUTICALS,INC./RIDGEFIELD-2010-BP-15407BP

PATIENT
  Sex: Female

DRUGS (6)
  1. ALTACE [Concomitant]
     Indication: HYPERTENSION
  2. PRADAXA [Suspect]
     Indication: ATRIAL FIBRILLATION
     Dosage: 300 MG
     Route: 048
     Dates: start: 20101201
  3. HYTRIN [Concomitant]
     Indication: HYPERTENSION
  4. LASIX [Concomitant]
     Indication: CARDIAC FAILURE CONGESTIVE
  5. FOLIC ACID [Concomitant]
     Indication: PROPHYLAXIS
  6. TOPROL-XL [Concomitant]
     Indication: HYPERTENSION

REACTIONS (3)
  - CHRONIC OBSTRUCTIVE PULMONARY DISEASE [None]
  - CARDIAC FAILURE CONGESTIVE [None]
  - DIARRHOEA [None]
